FAERS Safety Report 8481024-4 (Version None)
Quarter: 2012Q3

REPORT INFORMATION
  Report Type: 
  Country: None (occurrence: None)
  Receive Date: 20120702
  Receipt Date: 20120621
  Transmission Date: 20120928
  Serious: Yes (Hospitalization)
  Sender: FDA-Public Use
  Company Number: GB-JNJFOC-20120611923

PATIENT
  Sex: Male
  Weight: 82 kg

DRUGS (6)
  1. ZOLADEX [Suspect]
     Indication: PRODUCT USED FOR UNKNOWN INDICATION
     Route: 058
     Dates: start: 20120328
  2. BISOPROLOL FUMARATE [Concomitant]
     Route: 048
  3. LISINOPRIL [Concomitant]
     Route: 048
  4. ATORVASTATIN [Concomitant]
     Route: 048
  5. ASPIRIN [Concomitant]
     Route: 048
  6. ABIRATERONE ACETATE [Suspect]
     Indication: PROSTATE CANCER
     Route: 048
     Dates: start: 20120624

REACTIONS (3)
  - PALPITATIONS [None]
  - DYSPNOEA [None]
  - HYPOKALAEMIA [None]
